FAERS Safety Report 6141769-8 (Version None)
Quarter: 2009Q2

REPORT INFORMATION
  Report Type: 
  Country: None (occurrence: None)
  Receive Date: 20090402
  Receipt Date: 20080827
  Transmission Date: 20091009
  Serious: No
  Sender: FDA-Public Use
  Company Number: US-ABBOTT-08P-163-0472695-00

PATIENT
  Sex: Female

DRUGS (2)
  1. LUPRON DEPOT [Suspect]
     Indication: ENDOMETRIOSIS
     Route: 030
     Dates: start: 20071201
  2. ESCITALOPRAM OXALATE [Concomitant]
     Indication: DRUG USE FOR UNKNOWN INDICATION
     Route: 048

REACTIONS (10)
  - AMNESIA [None]
  - ANTINUCLEAR ANTIBODY POSITIVE [None]
  - ARTHRALGIA [None]
  - HOT FLUSH [None]
  - HYPERHIDROSIS [None]
  - JOINT SWELLING [None]
  - LETHARGY [None]
  - MALAISE [None]
  - OEDEMA PERIPHERAL [None]
  - VULVOVAGINAL DRYNESS [None]
